FAERS Safety Report 5149753-8 (Version None)
Quarter: 2006Q4

REPORT INFORMATION
  Report Type: 
  Country: None (occurrence: None)
  Receive Date: 20061113
  Receipt Date: 20061110
  Transmission Date: 20070319
  Serious: Yes (Life-Threatening)
  Sender: FDA-Public Use
  Company Number: 2006PK02299

PATIENT
  Sex: Female

DRUGS (1)
  1. NAROPIN [Suspect]

REACTIONS (3)
  - ARRHYTHMIA [None]
  - CONVULSION [None]
  - VENTRICULAR FLUTTER [None]
